FAERS Safety Report 8557833 (Version 4)
Quarter: 2012Q4

REPORT INFORMATION
  Report Type: 
  Country: US (occurrence: US)
  Receive Date: 20120511
  Receipt Date: 20121105
  Transmission Date: 20130627
  Serious: Yes (Death, Hospitalization, Other)
  Sender: FDA-Public Use
  Company Number: US-ASTRAZENECA-2012SE29258

PATIENT
  Age: 72 Year
  Sex: Male

DRUGS (4)
  1. NEXIUM [Suspect]
     Route: 048
  2. TOPROL XL [Suspect]
     Route: 048
  3. LORTAB [Concomitant]
  4. SYNTHROID [Concomitant]

REACTIONS (6)
  - Convulsion [Fatal]
  - Dementia [Fatal]
  - Musculoskeletal disorder [Unknown]
  - Pain in extremity [Unknown]
  - Hyperthyroidism [Unknown]
  - Hallucination [Unknown]
